FAERS Safety Report 13368728 (Version 3)
Quarter: 2017Q2

REPORT INFORMATION
  Report Type: Report from Study
  Country: IT (occurrence: IT)
  Receive Date: 20170324
  Receipt Date: 20170407
  Transmission Date: 20170830
  Serious: Yes (Hospitalization)
  Sender: FDA-Public Use
  Company Number: IT-TEVA-751653ACC

PATIENT
  Age: 45 Year
  Sex: Male

DRUGS (2)
  1. LANSOPRAZOLE. [Suspect]
     Active Substance: LANSOPRAZOLE
     Indication: DRUG USE DISORDER
     Route: 048
  2. DILTIAZEM. [Suspect]
     Active Substance: DILTIAZEM
     Indication: DRUG USE DISORDER
     Route: 048

REACTIONS (3)
  - Drug use disorder [Unknown]
  - Nausea [Unknown]
  - Sopor [Unknown]

NARRATIVE: CASE EVENT DATE: 20160906
